FAERS Safety Report 5615316-0 (Version None)
Quarter: 2008Q1

REPORT INFORMATION
  Report Type: 
  Country: None (occurrence: None)
  Receive Date: 20080204
  Receipt Date: 20080204
  Transmission Date: 20080703
  Serious: Yes (Hospitalization)
  Sender: FDA-Public Use
  Company Number: None

PATIENT
  Age: 66 Year
  Sex: Male
  Weight: 83.2 kg

DRUGS (2)
  1. ATENOLOL [Suspect]
     Indication: HYPERTENSION
     Dosage: 100MG EVERY DAY PO
     Route: 048
     Dates: start: 20030923
  2. HYDROCHLOROTHIAZIDE [Suspect]
     Indication: HYPERTENSION
     Dosage: 25MG EVERY DAY PO
     Route: 048
     Dates: start: 20030923, end: 20080129

REACTIONS (2)
  - BRADYCARDIA [None]
  - SYNCOPE [None]
